FAERS Safety Report 4286334-2 (Version None)
Quarter: 2004Q1

REPORT INFORMATION
  Report Type: 
  Country: None (occurrence: None)
  Receive Date: 20040121
  Receipt Date: 20030714
  Transmission Date: 20041129
  Serious: Yes (Other)
  Sender: FDA-Public Use
  Company Number: A03200301565

PATIENT
  Age: 67 Year
  Sex: Male
  Weight: 87.5442 kg

DRUGS (10)
  1. PLAVIX [Suspect]
     Indication: ANGIOPLASTY
     Dosage: 75 MG QD - ORAL
     Route: 048
     Dates: start: 20030414, end: 20030501
  2. PLAVIX [Suspect]
     Indication: STENT PLACEMENT
     Dosage: 75 MG QD - ORAL
     Route: 048
     Dates: start: 20030414, end: 20030501
  3. VERAPAMIL HYDROCHLORIDE [Concomitant]
  4. METOPROLOL TARTRATE [Concomitant]
  5. TORSEMIDE [Concomitant]
  6. VITAMIN B COMPLEX CAP [Concomitant]
  7. VITAMIN B-12 [Concomitant]
  8. VITAMIN B6 [Concomitant]
  9. CALCIUM ASCORBATE [Concomitant]
  10. MINERAL TAB [Concomitant]

REACTIONS (1)
  - BLOOD PRESSURE INCREASED [None]
